FAERS Safety Report 10700498 (Version 1)
Quarter: 2015Q1

REPORT INFORMATION
  Report Type: Spontaneous
  Country: JP (occurrence: None)
  Receive Date: 20150107
  Receipt Date: 20150107
  Transmission Date: 20150721
  Serious: Yes (Life-Threatening, Hospitalization)
  Sender: FDA-Public Use
  Company Number: ABR_01737_2014

PATIENT
  Age: 55 Year
  Sex: Male

DRUGS (1)
  1. GLIADEL [Suspect]
     Active Substance: CARMUSTINE
     Indication: GLIOBLASTOMA
     Dosage: INTRACEREBRAL
     Dates: start: 20140529, end: 20140602

REACTIONS (3)
  - Brain midline shift [None]
  - Implant site extravasation [None]
  - Brain oedema [None]

NARRATIVE: CASE EVENT DATE: 20140529
